FAERS Safety Report 10370960 (Version 1)
Quarter: 2014Q3

REPORT INFORMATION
  Report Type: Spontaneous
  Country: BR (occurrence: BR)
  Receive Date: 20140808
  Receipt Date: 20140808
  Transmission Date: 20150326
  Serious: Yes (Hospitalization, Other)
  Sender: FDA-Public Use
  Company Number: BR-PFIZER INC-2014217767

PATIENT
  Age: 55 Year
  Sex: Female
  Weight: 86 kg

DRUGS (1)
  1. LIPITOR [Suspect]
     Active Substance: ATORVASTATIN CALCIUM
     Indication: BLOOD CHOLESTEROL INCREASED
     Dosage: 10 MG, DAILY
     Route: 048
     Dates: start: 200503

REACTIONS (4)
  - Limb injury [Unknown]
  - Arthropathy [Unknown]
  - Gastritis [Unknown]
  - Limb injury [Unknown]

NARRATIVE: CASE EVENT DATE: 200508
